FAERS Safety Report 6723480-5 (Version None)
Quarter: 2010Q2

REPORT INFORMATION
  Report Type: 
  Country: None (occurrence: None)
  Receive Date: 20100513
  Receipt Date: 20100503
  Transmission Date: 20101027
  Serious: Yes (Hospitalization)
  Sender: FDA-Public Use
  Company Number: NL-BRISTOL-MYERS SQUIBB COMPANY-15089998

PATIENT
  Age: 37 Year
  Sex: Male

DRUGS (7)
  1. LOMUSTINE [Suspect]
     Indication: ASTROCYTOMA
     Dosage: ON DAY 1
     Dates: start: 20081101
  2. VINCRISTINE SULFATE [Suspect]
     Indication: ASTROCYTOMA
     Dosage: ON DAYS 8 AND 29
     Dates: start: 20081101
  3. PROCARBAZINE [Suspect]
     Indication: ASTROCYTOMA
     Dosage: DAYS 8-21
     Dates: start: 20081101
  4. DEXAMETHASONE [Suspect]
  5. LEVETIRACETAM [Concomitant]
  6. VALPROATE SODIUM [Concomitant]
  7. CLOBAZAM [Concomitant]

REACTIONS (3)
  - ECTHYMA [None]
  - FEBRILE NEUTROPENIA [None]
  - INAPPROPRIATE ANTIDIURETIC HORMONE SECRETION [None]
